FAERS Safety Report 12758771 (Version 1)
Quarter: 2016Q3

REPORT INFORMATION
  Report Type: Spontaneous
  Country: JP (occurrence: JP)
  Receive Date: 20160919
  Receipt Date: 20160919
  Transmission Date: 20161109
  Serious: Yes (Other)
  Sender: FDA-Public Use
  Company Number: JP-PFIZER INC-2016436739

PATIENT
  Age: 79 Year
  Sex: Male

DRUGS (2)
  1. INTAL [Suspect]
     Active Substance: CROMOLYN SODIUM
     Indication: ASTHMA
     Dosage: UNK
     Route: 055
  2. VENETLIN [Concomitant]
     Active Substance: ALBUTEROL SULFATE
     Dosage: UNK

REACTIONS (2)
  - Cardiac hypertrophy [Unknown]
  - Dyspnoea [Unknown]
